FAERS Safety Report 21908818 (Version 1)
Quarter: 2023Q1

REPORT INFORMATION
  Report Type: Spontaneous
  Country: EG (occurrence: EG)
  Receive Date: 20230125
  Receipt Date: 20230125
  Transmission Date: 20230418
  Serious: Yes (Other)
  Sender: FDA-Public Use
  Company Number: EG-PFIZER INC-PV202300015140

PATIENT
  Age: 45 Year
  Sex: Male

DRUGS (1)
  1. LORBRENA [Suspect]
     Active Substance: LORLATINIB
     Indication: Lung neoplasm malignant
     Dosage: 100 MG

REACTIONS (6)
  - Blood testosterone decreased [Unknown]
  - Oedema [Recovering/Resolving]
  - Weight increased [Unknown]
  - Dyspnoea [Unknown]
  - Penis disorder [Unknown]
  - Testicular disorder [Unknown]
